FAERS Safety Report 9287937 (Version 2)
Quarter: 2013Q3

REPORT INFORMATION
  Report Type: Spontaneous
  Country: US (occurrence: US)
  Receive Date: 20130514
  Receipt Date: 20130903
  Transmission Date: 20140515
  Serious: Yes (Hospitalization, Other)
  Sender: FDA-Public Use
  Company Number: US-BAYER-2013-059365

PATIENT
  Age: 36 Year
  Sex: Female

DRUGS (8)
  1. YAZ [Suspect]
     Dosage: UNK
     Dates: start: 2005, end: 2006
  2. YASMIN [Suspect]
     Dosage: UNK
     Dates: start: 2005, end: 2006
  3. OCELLA [Suspect]
     Dosage: UNK
     Dates: start: 2005, end: 2006
  4. NEXIUM [Concomitant]
     Dosage: 40 MG, 1 DAILY
     Dates: start: 20051020
  5. ALLEGRA [Concomitant]
     Dosage: 180 MG, 1 DAILY
  6. TETRACYCLINE [Concomitant]
     Dosage: 4 TIMES DAILY
  7. FLONASE [Concomitant]
     Dosage: 1 SPRAY EACH NOSTRIL DAILY
  8. GUAIFENESIN [Concomitant]
     Dosage: 600 MG, 1 TWICE DAILY

REACTIONS (9)
  - Deep vein thrombosis [None]
  - Thrombosis [None]
  - Abdominal pain [None]
  - Injury [None]
  - Pain [None]
  - Emotional distress [None]
  - General physical health deterioration [None]
  - Anxiety [None]
  - Pain [None]
